FAERS Safety Report 22111874 (Version 12)
Quarter: 2023Q4

REPORT INFORMATION
  Report Type: Spontaneous
  Country: CA (occurrence: CA)
  Receive Date: 20230318
  Receipt Date: 20231213
  Transmission Date: 20240109
  Serious: Yes (Other)
  Sender: FDA-Public Use
  Company Number: CA-CELLTRION INC.-2022CA021707

PATIENT

DRUGS (12)
  1. INFLECTRA [Suspect]
     Active Substance: INFLIXIMAB-DYYB
     Indication: Crohn^s disease
     Dosage: 5 MG/KG, CYCLIC (WEEKS 0, 2, 6, THEN EVERY 4 WEEKS)
     Route: 042
     Dates: start: 20221128
  2. INFLECTRA [Suspect]
     Active Substance: INFLIXIMAB-DYYB
     Dosage: 5 MG/KG, CYCLIC (INDUCTION AT WEEKS 0, 2, 6, THEN EVERY 4 WEEKS)
     Route: 042
     Dates: start: 20230113
  3. INFLECTRA [Suspect]
     Active Substance: INFLIXIMAB-DYYB
     Dosage: 5 MG/KG (300MG), CYCLIC (EVERY 4 WEEKS)
     Route: 042
     Dates: start: 20230210
  4. INFLECTRA [Suspect]
     Active Substance: INFLIXIMAB-DYYB
     Dosage: 5 MG/KG, CYCLIC (EVERY 4 WEEKS)
     Route: 042
     Dates: start: 20230407
  5. INFLECTRA [Suspect]
     Active Substance: INFLIXIMAB-DYYB
     Dosage: 5 MG/KG, CYCLIC (EVERY 4 WEEKS)
     Route: 042
     Dates: start: 20230505
  6. INFLECTRA [Suspect]
     Active Substance: INFLIXIMAB-DYYB
     Dosage: 5 MG/KG (300MG),  CYCLIC (EVERY 4 WEEKS)
     Route: 042
     Dates: start: 20230602
  7. INFLECTRA [Suspect]
     Active Substance: INFLIXIMAB-DYYB
     Dosage: 5 MG/KG (300MG), CYCLIC (EVERY 4 WEEKS)
     Route: 042
     Dates: start: 20230629
  8. INFLECTRA [Suspect]
     Active Substance: INFLIXIMAB-DYYB
     Dosage: 5 MG/KG, CYCLIC (INDUCTION AT WEEKS 0, 2, 6, THEN EVERY 4 WEEKS)
     Route: 042
     Dates: start: 20230825
  9. INFLECTRA [Suspect]
     Active Substance: INFLIXIMAB-DYYB
     Dosage: 5 MG/KG (300MG), CYCLIC ( INDUCTION AT WEEKS 0, 2, 6, THEN EVERY 4 WEEKS)
     Route: 042
     Dates: start: 20230922
  10. INFLECTRA [Suspect]
     Active Substance: INFLIXIMAB-DYYB
     Dosage: 5 MG/KG (300MG), CYCLIC ( INDUCTION AT WEEKS 0, 2, 6, THEN EVERY 4 WEEKS)
     Route: 042
     Dates: start: 20231023
  11. INFLECTRA [Suspect]
     Active Substance: INFLIXIMAB-DYYB
     Dosage: 5 MG/KG (300MG), CYCLIC
     Route: 042
     Dates: start: 20231124
  12. PREDNISONE [Concomitant]
     Active Substance: PREDNISONE
     Dosage: UNK

REACTIONS (9)
  - Fall [Not Recovered/Not Resolved]
  - Wrist fracture [Not Recovered/Not Resolved]
  - Skin abrasion [Not Recovered/Not Resolved]
  - Pain [Unknown]
  - Blood pressure diastolic decreased [Not Recovered/Not Resolved]
  - Insomnia [Not Recovered/Not Resolved]
  - Blood pressure systolic increased [Not Recovered/Not Resolved]
  - Off label use [Unknown]
  - Inappropriate schedule of product administration [Unknown]

NARRATIVE: CASE EVENT DATE: 20221128
